FAERS Safety Report 6628350-9 (Version None)
Quarter: 2010Q1

REPORT INFORMATION
  Report Type: 
  Country: None (occurrence: None)
  Receive Date: 20100311
  Receipt Date: 20100226
  Transmission Date: 20100710
  Serious: Yes (Hospitalization)
  Sender: FDA-Public Use
  Company Number: JP-ROCHE-676857

PATIENT
  Sex: Female
  Weight: 45 kg

DRUGS (18)
  1. TOCILIZUMAB [Suspect]
     Indication: RHEUMATOID ARTHRITIS
     Route: 042
     Dates: start: 20081112, end: 20081211
  2. OCRELIZUMAB [Suspect]
     Indication: RHEUMATOID ARTHRITIS
     Route: 042
     Dates: start: 20090722, end: 20090805
  3. METHOTREXATE [Suspect]
     Indication: RHEUMATOID ARTHRITIS
     Dosage: BEGINNING AFTER BREAKFAST: TRIAL PREINITIATION
     Route: 048
  4. METHOTREXATE [Suspect]
     Dosage: AFTER THE MEAL IN THE MORNING AND EVENING 4MG-0.2MG
     Route: 048
  5. HUMIRA [Suspect]
     Indication: RHEUMATOID ARTHRITIS
     Route: 042
     Dates: start: 20080817, end: 20080911
  6. ENBREL [Suspect]
     Indication: RHEUMATOID ARTHRITIS
     Dosage: DRUG:ENBREL(ETANERCEPT(GENETICAL RECOMBINATION)) FORM: INJECTION
     Route: 058
     Dates: start: 20060906, end: 20080609
  7. ENBREL [Suspect]
     Route: 058
     Dates: start: 20090105, end: 20090622
  8. REMICADE [Suspect]
     Indication: RHEUMATOID ARTHRITIS
     Dosage: ROUTE: INTRAVENOUS NOS FORM: INJECTION.
     Route: 042
     Dates: start: 20060531, end: 20060810
  9. ISCOTIN [Suspect]
     Indication: ANTIBIOTIC PROPHYLAXIS
     Dosage: NOTE: AFTER THE BREAKFAST
     Route: 048
  10. FERROMIA [Suspect]
     Indication: ANAEMIA PROPHYLAXIS
     Dosage: NOTE: AFTER THE MEAL IN THE MORNING AND EVENING
     Route: 048
  11. CELCOX [Suspect]
     Indication: RHEUMATOID ARTHRITIS
     Dosage: DRUG: CELECOX (CELECOXIB)NOTE: AFTER THE MEAL IN THE MORNING AND EVENING
     Route: 048
  12. VITAMEDIN [Suspect]
     Indication: VITAMIN SUPPLEMENTATION
     Dosage: NOTE: AFTER THE BREAKFAST
     Route: 048
  13. OMEPRAL [Suspect]
     Indication: GASTRITIS PROPHYLAXIS
     Dosage: BEGINNING AFTER BREAKFAST: TRIAL PREINITIATION
     Route: 048
  14. KLARICID [Suspect]
     Indication: BRONCHIECTASIS
     Dosage: BEGINNING AFTER BREAKFAST: TRIAL PREINITIATION
     Route: 048
  15. FOLIAMIN [Suspect]
     Indication: PROPHYLAXIS
     Dosage: BEGINNING AFTER BREAKFAST: TRIAL PREINITIATION
     Route: 048
  16. KETOPROFEN [Suspect]
     Indication: RHEUMATOID ARTHRITIS
     Dosage: DRUG: TOUCHRON (KETOPROFEN) FORM: TAPE ONE PIECE ONCE
     Route: 061
     Dates: start: 20090924
  17. PREDONINE [Suspect]
     Indication: RHEUMATOID ARTHRITIS
     Dosage: NOTE: AFTER THE SUPPER
     Route: 048
     Dates: start: 20090924
  18. BAKTAR [Suspect]
     Indication: INFECTION PROPHYLAXIS
     Dosage: AFTER THE BREAKFAST
     Route: 048
     Dates: start: 20091211

REACTIONS (2)
  - OVARIAN CANCER [None]
  - UTERINE CANCER [None]
